FAERS Safety Report 17808370 (Version 1)
Quarter: 2020Q2

REPORT INFORMATION
  Report Type: Spontaneous
  Country: CN (occurrence: CN)
  Receive Date: 20200520
  Receipt Date: 20200520
  Transmission Date: 20200714
  Serious: Yes (Death)
  Sender: FDA-Public Use
  Company Number: CN-ROCHE-2603352

PATIENT
  Age: 49 Year
  Sex: Female

DRUGS (10)
  1. PIRARUBICIN [Concomitant]
     Active Substance: PIRARUBICIN
     Indication: METASTASES TO LYMPH NODES
  2. PIRARUBICIN [Concomitant]
     Active Substance: PIRARUBICIN
     Indication: TRIPLE NEGATIVE BREAST CANCER
     Dosage: 4 CYCLES
     Route: 065
  3. XELODA [Suspect]
     Active Substance: CAPECITABINE
     Indication: METASTASES TO LYMPH NODES
  4. CYCLOPHOSPHAMIDE. [Concomitant]
     Active Substance: CYCLOPHOSPHAMIDE
     Indication: TRIPLE NEGATIVE BREAST CANCER
     Dosage: 4 CYCLES
     Route: 065
  5. XELODA [Suspect]
     Active Substance: CAPECITABINE
     Indication: TRIPLE NEGATIVE BREAST CANCER
     Route: 048
  6. DOCETAXEL. [Concomitant]
     Active Substance: DOCETAXEL
     Indication: TRIPLE NEGATIVE BREAST CANCER
     Dosage: 4 CYCLES
     Route: 065
  7. TAMOXIFEN CITRATE. [Concomitant]
     Active Substance: TAMOXIFEN CITRATE
     Indication: TRIPLE NEGATIVE BREAST CANCER
     Dosage: 4 CYCLES
     Route: 065
  8. DOCETAXEL. [Concomitant]
     Active Substance: DOCETAXEL
     Indication: METASTASES TO LYMPH NODES
  9. CYCLOPHOSPHAMIDE. [Concomitant]
     Active Substance: CYCLOPHOSPHAMIDE
     Indication: METASTASES TO LYMPH NODES
  10. TAMOXIFEN CITRATE. [Concomitant]
     Active Substance: TAMOXIFEN CITRATE
     Indication: METASTASES TO LYMPH NODES

REACTIONS (1)
  - Death [Fatal]
